FAERS Safety Report 7062728-7 (Version None)
Quarter: 2010Q4

REPORT INFORMATION
  Report Type: 
  Country: None (occurrence: None)
  Receive Date: 20101026
  Receipt Date: 20091226
  Transmission Date: 20110411
  Serious: No
  Sender: FDA-Public Use
  Company Number: US-PFIZER INC-2009316077

PATIENT
  Sex: Female

DRUGS (4)
  1. LIPITOR [Suspect]
     Indication: BLOOD CHOLESTEROL INCREASED
     Dosage: 10 MG, 1X/DAY
     Route: 048
     Dates: start: 20091023, end: 20091224
  2. LYRICA [Concomitant]
     Dosage: 50 MG, UNK
     Dates: start: 20090601
  3. SYNTHROID [Concomitant]
     Dosage: UNK
     Dates: start: 20060101
  4. METOPROLOL TARTRATE [Concomitant]
     Dosage: 100 MG, UNK
     Dates: start: 19980101

REACTIONS (1)
  - MYALGIA [None]
